FAERS Safety Report 7763210-1 (Version None)
Quarter: 2011Q3

REPORT INFORMATION
  Report Type: 
  Country: None (occurrence: None)
  Receive Date: 20110920
  Receipt Date: 20110914
  Transmission Date: 20111222
  Serious: Yes (Other)
  Sender: FDA-Public Use
  Company Number: PHHY2011JP82222

PATIENT
  Age: 47 Year
  Sex: Female

DRUGS (3)
  1. LAMISIL [Suspect]
     Route: 048
  2. LIPITOR [Concomitant]
     Route: 048
  3. ZOLPIDEM [Concomitant]
     Route: 048

REACTIONS (1)
  - KERATITIS [None]
